FAERS Safety Report 20709516 (Version 1)
Quarter: 2022Q2

REPORT INFORMATION
  Report Type: Spontaneous
  Country: US (occurrence: None)
  Receive Date: 20220413
  Receipt Date: 20220413
  Transmission Date: 20220721
  Serious: No
  Sender: FDA-Public Use
  Company Number: None

PATIENT
  Age: 63 Year
  Sex: Female
  Weight: 73.48 kg

DRUGS (6)
  1. VERZENIO [Suspect]
     Active Substance: ABEMACICLIB
     Indication: Breast cancer
     Dosage: FREQUENCY : TWICE A DAY;?
     Route: 048
     Dates: start: 20220208
  2. LETROZOLE [Concomitant]
     Active Substance: LETROZOLE
  3. COLACE 100 mg CAPSULE [Concomitant]
  4. MULTIVIAMINS [Concomitant]
  5. ZYRTEC 10 mg TABLET [Concomitant]
  6. TUMS [Concomitant]

REACTIONS (7)
  - Vomiting [None]
  - Abdominal pain upper [None]
  - Diarrhoea [None]
  - Headache [None]
  - Fatigue [None]
  - Dysgeusia [None]
  - Therapy interrupted [None]

NARRATIVE: CASE EVENT DATE: 20220413
